FAERS Safety Report 5207365-1 (Version None)
Quarter: 2007Q1

REPORT INFORMATION
  Report Type: 
  Country: None (occurrence: None)
  Receive Date: 20070112
  Receipt Date: 20070103
  Transmission Date: 20070707
  Serious: Yes (Death)
  Sender: FDA-Public Use
  Company Number: EG-ROCHE-478053

PATIENT
  Age: 26 Year
  Sex: Male

DRUGS (1)
  1. TAMIFLU [Suspect]
     Indication: AVIAN INFLUENZA
     Route: 065
     Dates: start: 20061220

REACTIONS (1)
  - AVIAN INFLUENZA [None]
